FAERS Safety Report 5048547-1 (Version None)
Quarter: 2006Q3

REPORT INFORMATION
  Report Type: 
  Country: None (occurrence: None)
  Receive Date: 20060705
  Receipt Date: 20060616
  Transmission Date: 20061208
  Serious: Yes (Hospitalization)
  Sender: FDA-Public Use
  Company Number: DSA_28367_2006

PATIENT
  Age: 68 Year
  Sex: Female

DRUGS (7)
  1. TAVOR [Suspect]
     Dosage: DF ONCE PO
     Route: 048
     Dates: start: 20060615, end: 20060615
  2. MARCUMAR [Suspect]
     Dosage: DF
     Dates: start: 20060615, end: 20060615
  3. SAROTEN [Suspect]
     Dosage: DF ONCE PO
     Route: 048
     Dates: start: 20060615, end: 20060615
  4. ADUMBRAN [Suspect]
     Dosage: 10 MG Q DAY PO
     Route: 048
  5. METOPROLOL [Suspect]
     Dosage: 50 MG BID PO
     Route: 048
  6. RAMIPRIL [Suspect]
     Dosage: 2.5 MG Q DAY PO
     Route: 048
  7. MST [Suspect]
     Dosage: 30 MG BID PO
     Route: 048

REACTIONS (2)
  - HALLUCINATION [None]
  - PROTHROMBIN TIME PROLONGED [None]
